FAERS Safety Report 16270019 (Version 1)
Quarter: 2019Q2

REPORT INFORMATION
  Report Type: Spontaneous
  Country: US (occurrence: US)
  Receive Date: 20190502
  Receipt Date: 20190502
  Transmission Date: 20190711
  Serious: Yes (Other)
  Sender: FDA-Public Use
  Company Number: None

PATIENT
  Age: 48 Year
  Sex: Female
  Weight: 51.75 kg

DRUGS (4)
  1. ONDANSETRON ODT [Concomitant]
     Active Substance: ONDANSETRON
  2. CIPRODEX [Suspect]
     Active Substance: CIPROFLOXACIN HYDROCHLORIDE\DEXAMETHASONE
     Indication: EAR INFECTION
     Dosage: ?          QUANTITY:5 DROP(S);?
     Route: 001
     Dates: start: 20190429, end: 20190430
  3. AMOXICILLIN. [Concomitant]
     Active Substance: AMOXICILLIN
  4. TYLENOL ARTHRITIS PAIN [Concomitant]
     Active Substance: ACETAMINOPHEN

REACTIONS (9)
  - Ear congestion [None]
  - Dizziness [None]
  - Hyperacusis [None]
  - Tinnitus [None]
  - Ear pain [None]
  - Trismus [None]
  - Drug ineffective [None]
  - Ear discomfort [None]
  - Ear infection [None]

NARRATIVE: CASE EVENT DATE: 20190501
